FAERS Safety Report 24377314 (Version 1)
Quarter: 2024Q3

REPORT INFORMATION
  Report Type: Spontaneous
  Country: US (occurrence: None)
  Receive Date: 20240927
  Receipt Date: 20240927
  Transmission Date: 20241017
  Serious: No
  Sender: Public
  Company Number: None

PATIENT
  Age: 69 Year
  Sex: Male

DRUGS (1)
  1. SEVELAMER CARBONATE [Suspect]
     Active Substance: SEVELAMER CARBONATE
     Indication: Vascular operation
     Dosage: 2400.0 MG 3 TIMES A DAY ORAL ?
     Route: 048

REACTIONS (1)
  - Gastric ulcer haemorrhage [None]

NARRATIVE: CASE EVENT DATE: 20231120
